FAERS Safety Report 19645798 (Version 1)
Quarter: 2021Q3

REPORT INFORMATION
  Report Type: Spontaneous
  Country: US (occurrence: US)
  Receive Date: 20210730
  Receipt Date: 20210730
  Transmission Date: 20211014
  Serious: Yes (Death)
  Sender: FDA-Public Use
  Company Number: None

PATIENT
  Age: 70 Year
  Sex: Female

DRUGS (6)
  1. REPATHA [Suspect]
     Active Substance: EVOLOCUMAB
     Indication: TYPE IIA HYPERLIPIDAEMIA
     Route: 058
     Dates: start: 20190817
  2. BEPREVE [Concomitant]
     Active Substance: BEPOTASTINE BESILATE
  3. VALSARTAN. [Concomitant]
     Active Substance: VALSARTAN
  4. FLUTICASONE. [Concomitant]
     Active Substance: FLUTICASONE
  5. AMLOD/VALSAR [Concomitant]
  6. CAREDILOL [Concomitant]

REACTIONS (1)
  - Death [None]

NARRATIVE: CASE EVENT DATE: 20210726
